FAERS Safety Report 7333277-3 (Version None)
Quarter: 2011Q1

REPORT INFORMATION
  Report Type: 
  Country: None (occurrence: None)
  Receive Date: 20110304
  Receipt Date: 20110221
  Transmission Date: 20110831
  Serious: Yes (Other)
  Sender: FDA-Public Use
  Company Number: US-ELI_LILLY_AND_COMPANY-US201102006182

PATIENT
  Age: 49 Year
  Sex: Female

DRUGS (5)
  1. KLONOPIN [Concomitant]
  2. CYMBALTA [Suspect]
     Indication: FIBROMYALGIA
     Dosage: 60 MG, EACH EVENING
     Dates: start: 20081205, end: 20110214
  3. TOPROL-XL [Concomitant]
  4. MUSCLE RELAXANTS [Concomitant]
  5. LORTAB [Concomitant]

REACTIONS (7)
  - UPPER LIMB FRACTURE [None]
  - FALL [None]
  - SOMNOLENCE [None]
  - SPINAL FRACTURE [None]
  - DRUG WITHDRAWAL SYNDROME [None]
  - PARAESTHESIA [None]
  - DIZZINESS [None]
